FAERS Safety Report 8449774-3 (Version None)
Quarter: 2012Q2

REPORT INFORMATION
  Report Type: 
  Country: None (occurrence: None)
  Receive Date: 20120620
  Receipt Date: 20120613
  Transmission Date: 20120825
  Serious: Yes (Disabling)
  Sender: FDA-Public Use
  Company Number: IT-BAYER-2012-058229

PATIENT
  Age: 15 Year
  Sex: Female

DRUGS (1)
  1. YASMIN [Suspect]
     Indication: OVARIAN CYSTECTOMY
     Dosage: UNK
     Route: 048
     Dates: start: 20100701, end: 20110223

REACTIONS (7)
  - DYSPHAGIA [None]
  - NEUROGENIC BLADDER [None]
  - QUADRIPARESIS [None]
  - CARDIAC ARREST [None]
  - DEPRESSED LEVEL OF CONSCIOUSNESS [None]
  - PULMONARY EMBOLISM [None]
  - CEREBRAL ISCHAEMIA [None]
